FAERS Safety Report 5902710-3 (Version None)
Quarter: 2008Q3

REPORT INFORMATION
  Report Type: 
  Country: None (occurrence: None)
  Receive Date: 20080929
  Receipt Date: 20080929
  Transmission Date: 20090109
  Serious: Yes (Other)
  Sender: FDA-Public Use
  Company Number: None

PATIENT

DRUGS (3)
  1. LISINOPRIL [Suspect]
     Indication: HYPERTENSION
     Dosage: 20 MG 1 A DAY YES
     Dates: start: 20080515
  2. LISINOPRIL [Suspect]
     Indication: HYPERTENSION
     Dosage: 20 MG 1 A DAY YES
     Dates: start: 20080518
  3. LISINOPRIL [Suspect]
     Indication: HYPERTENSION
     Dosage: 20 MG 1 A DAY YES
     Dates: start: 20080519

REACTIONS (6)
  - DRUG INEFFECTIVE [None]
  - FEELING ABNORMAL [None]
  - HYPERTENSION [None]
  - NIGHT SWEATS [None]
  - PHARMACEUTICAL PRODUCT COMPLAINT [None]
  - TREMOR [None]
